FAERS Safety Report 4794947-4 (Version None)
Quarter: 2005Q3

REPORT INFORMATION
  Report Type: 
  Country: None (occurrence: None)
  Receive Date: 20050914
  Receipt Date: 20040827
  Transmission Date: 20060218
  Serious: Yes (Hospitalization)
  Sender: FDA-Public Use
  Company Number: 163-20785-04080563

PATIENT
  Age: 44 Year
  Sex: Female

DRUGS (1)
  1. THALOMID [Suspect]
     Indication: MALIGNANT MELANOMA
     Dosage: 150 MG, DAILY, ORAL
     Route: 048
     Dates: start: 20040110, end: 20040101

REACTIONS (1)
  - CEREBROVASCULAR ACCIDENT [None]
